FAERS Safety Report 10169970 (Version 2)
Quarter: 2014Q2

REPORT INFORMATION
  Report Type: Spontaneous
  Country: US (occurrence: US)
  Receive Date: 20140513
  Receipt Date: 20140513
  Transmission Date: 20141212
  Serious: Yes (Hospitalization)
  Sender: FDA-Public Use
  Company Number: US-BRISTOL-MYERS SQUIBB COMPANY-19809698

PATIENT
  Age: 26 Year
  Sex: Female
  Weight: 104.31 kg

DRUGS (2)
  1. ABILIFY [Suspect]
     Indication: SCHIZOAFFECTIVE DISORDER BIPOLAR TYPE
     Route: 048
     Dates: end: 20140430
  2. CITALOPRAM [Concomitant]
     Dosage: 20MG:AT QHS

REACTIONS (7)
  - Gallbladder disorder [Unknown]
  - Memory impairment [Unknown]
  - Nervousness [Unknown]
  - Drug dose omission [Unknown]
  - Wrong technique in drug usage process [Unknown]
  - Drug withdrawal syndrome [Unknown]
  - Nausea [Unknown]
